FAERS Safety Report 17258204 (Version 5)
Quarter: 2025Q3

REPORT INFORMATION
  Report Type: Spontaneous
  Country: EU (occurrence: EU)
  Receive Date: 20200110
  Receipt Date: 20250728
  Transmission Date: 20251020
  Serious: Yes (Other)
  Sender: MYLAN
  Company Number: EU-ASTELLAS-2018US040639

PATIENT
  Age: 39 Year
  Sex: Female
  Weight: 55 kg

DRUGS (21)
  1. VORICONAZOLE [Suspect]
     Active Substance: VORICONAZOLE
     Indication: Aspergillus infection
  2. VORICONAZOLE [Suspect]
     Active Substance: VORICONAZOLE
     Indication: Cerebral aspergillosis
     Dosage: 400 MG THREE TIMES A DAY [T.I.D.]; 7 MG/KG T.I.D.
  3. VORICONAZOLE [Suspect]
     Active Substance: VORICONAZOLE
     Dosage: 650 MG PER DAY DIVIDED INTO 2 INTAKES
  4. VORICONAZOLE [Suspect]
     Active Substance: VORICONAZOLE
     Dosage: 300 MILLIGRAM, QD
  5. VORICONAZOLE [Suspect]
     Active Substance: VORICONAZOLE
     Dosage: 650 MILLIGRAM, QD (300 MG, BID)
  6. VORICONAZOLE [Suspect]
     Active Substance: VORICONAZOLE
     Dosage: 400 MILLIGRAM, QD (200 MG, BID)
  7. VORICONAZOLE [Suspect]
     Active Substance: VORICONAZOLE
  8. VORICONAZOLE [Suspect]
     Active Substance: VORICONAZOLE
     Dosage: 1200 MILLIGRAM, QD (400 MG, TID)
  9. VORICONAZOLE [Suspect]
     Active Substance: VORICONAZOLE
  10. VORICONAZOLE [Suspect]
     Active Substance: VORICONAZOLE
     Dosage: 300 MILLIGRAM, BID (600 MILLIGRAM, ONCE A DAY)
  11. BENDAMUSTINE [Suspect]
     Active Substance: BENDAMUSTINE
     Indication: Chronic lymphocytic leukaemia
  12. VORICONAZOLE [Suspect]
     Active Substance: VORICONAZOLE
     Indication: Aspergillus infection
  13. VORICONAZOLE [Suspect]
     Active Substance: VORICONAZOLE
     Indication: Cerebral aspergillosis
  14. AMPHOTERICIN B [Suspect]
     Active Substance: AMPHOTERICIN B
     Indication: Aspergillus infection
  15. AMPHOTERICIN B [Suspect]
     Active Substance: AMPHOTERICIN B
     Indication: Cerebral aspergillosis
  16. ISAVUCONAZOLE [Suspect]
     Active Substance: ISAVUCONAZOLE
     Indication: Cerebral aspergillosis
     Dosage: 300 MILLIGRAM, QD
  17. ISAVUCONAZOLE [Suspect]
     Active Substance: ISAVUCONAZOLE
     Dosage: 200 MILLIGRAM, QD
  18. CASPOFUNGIN [Concomitant]
     Active Substance: CASPOFUNGIN
     Indication: Aspergillus infection
     Dosage: 150 MG/DAY (HIGH DOSE)
  19. CASPOFUNGIN [Concomitant]
     Active Substance: CASPOFUNGIN
     Indication: Cerebral aspergillosis
  20. BENDAMUSTINE [Concomitant]
     Active Substance: BENDAMUSTINE
     Indication: Chronic lymphocytic leukaemia
  21. BENDAMUSTINE [Concomitant]
     Active Substance: BENDAMUSTINE
     Indication: Chronic myeloid leukaemia

REACTIONS (13)
  - Cerebral aspergillosis [Recovered/Resolved]
  - Generalised tonic-clonic seizure [Unknown]
  - Neutropenia [Unknown]
  - Cholestasis [Unknown]
  - Drug level below therapeutic [Unknown]
  - Treatment failure [Recovered/Resolved]
  - Drug level decreased [Not Recovered/Not Resolved]
  - Hepatic cytolysis [Unknown]
  - Intentional overdose [Unknown]
  - Infection [Unknown]
  - Drug ineffective [Unknown]
  - Prescribed overdose [Unknown]
  - Off label use [Unknown]
